FAERS Safety Report 23315121 (Version 2)
Quarter: 2023Q4

REPORT INFORMATION
  Report Type: Spontaneous
  Country: FR (occurrence: None)
  Receive Date: 20231219
  Receipt Date: 20231229
  Transmission Date: 20240109
  Serious: Yes (Other)
  Sender: FDA-Public Use
  Company Number: 2023A287497

PATIENT
  Age: 8 Month
  Sex: Female

DRUGS (2)
  1. BEYFORTUS [Suspect]
     Active Substance: NIRSEVIMAB-ALIP
     Indication: Antiviral prophylaxis
     Dosage: UNK
     Route: 030
     Dates: start: 20231013, end: 20231013
  2. VITAMIN D NOS [Concomitant]
     Active Substance: VITAMIN D NOS
     Dosage: UNK, QD

REACTIONS (3)
  - Wheezing [Recovered/Resolved]
  - Cough [Recovered/Resolved]
  - Respiratory syncytial virus bronchiolitis [Recovered/Resolved]

NARRATIVE: CASE EVENT DATE: 20231127
